FAERS Safety Report 18371505 (Version 5)
Quarter: 2021Q4

REPORT INFORMATION
  Report Type: Spontaneous
  Country: US (occurrence: US)
  Receive Date: 20201012
  Receipt Date: 20211012
  Transmission Date: 20220303
  Serious: No
  Sender: FDA-Public Use
  Company Number: US-PFIZER INC-2017172991

PATIENT
  Age: 58 Year
  Sex: Female

DRUGS (6)
  1. RELPAX [Suspect]
     Active Substance: ELETRIPTAN HYDROBROMIDE
     Indication: Migraine
     Dosage: 40 MG, AS NEEDED (MAY REPEAT IN 2 HOURS, IF NECESSARY)
     Route: 048
     Dates: start: 20161212, end: 20171211
  2. RELPAX [Suspect]
     Active Substance: ELETRIPTAN HYDROBROMIDE
     Indication: Restless legs syndrome
     Dosage: 40 MG, AS NEEDED (MAY REPEAT IN 2 HOURS, IF NECESSARY)
     Route: 048
  3. RELPAX [Suspect]
     Active Substance: ELETRIPTAN HYDROBROMIDE
     Indication: Headache
     Dosage: UNK
  4. TOPAMAX [Concomitant]
     Active Substance: TOPIRAMATE
     Indication: Migraine prophylaxis
     Dosage: 150 MG, 2X/DAY (TAKES ONE AND A HALF TABLETS TWICE A DAY)
  5. TOPAMAX [Concomitant]
     Active Substance: TOPIRAMATE
     Indication: Headache
  6. TOPAMAX [Concomitant]
     Active Substance: TOPIRAMATE
     Indication: Trigeminal neuralgia

REACTIONS (2)
  - Limb injury [Unknown]
  - Intentional dose omission [Unknown]
